FAERS Safety Report 4539318-0 (Version None)
Quarter: 2004Q4

REPORT INFORMATION
  Report Type: 
  Country: None (occurrence: None)
  Receive Date: 20041222
  Receipt Date: 20041208
  Transmission Date: 20050328
  Serious: Yes (Death)
  Sender: FDA-Public Use
  Company Number: 2004097457

PATIENT
  Age: 49 Year
  Sex: Male

DRUGS (4)
  1. BEXTRA [Suspect]
     Indication: ARTHRALGIA
     Dosage: 40 MG (40 MG, 1 IN 1 D), ORAL
     Route: 048
     Dates: start: 20030101, end: 20040201
  2. ISOSORBIDE MONONITRATE [Concomitant]
  3. TRAMADOL HCL [Concomitant]
  4. GLICLAZIDE (GLICLAZIDE) [Concomitant]

REACTIONS (6)
  - CARDIAC ARREST [None]
  - CONDITION AGGRAVATED [None]
  - DIABETES MELLITUS [None]
  - PULMONARY OEDEMA [None]
  - SUDDEN CARDIAC DEATH [None]
  - WEIGHT DECREASED [None]
